FAERS Safety Report 4919670-4 (Version None)
Quarter: 2006Q1

REPORT INFORMATION
  Report Type: 
  Country: None (occurrence: None)
  Receive Date: 20060216
  Receipt Date: 20060127
  Transmission Date: 20060701
  Serious: Yes (Hospitalization)
  Sender: FDA-Public Use
  Company Number: ENT 2006 - 0002

PATIENT
  Age: 70 Year
  Sex: Male

DRUGS (7)
  1. COMTESS (ENTACAPONE) [Suspect]
     Indication: PARKINSON'S DISEASE
     Dosage: 600 MG (200 MG, 3 IN 1 D), ORAL
     Route: 048
     Dates: start: 20051207, end: 20051230
  2. SINEMET CR [Concomitant]
  3. SINEMET [Concomitant]
  4. WARFARIN SODIUM [Concomitant]
  5. LOSARTAN POTASSIUM [Concomitant]
  6. ROPINIROLE [Concomitant]
  7. FRUSEMIDE [Concomitant]

REACTIONS (10)
  - ARTHRALGIA [None]
  - BLOOD CREATININE INCREASED [None]
  - BLOOD UREA INCREASED [None]
  - DIZZINESS [None]
  - JOINT SWELLING [None]
  - NAUSEA [None]
  - OEDEMA PERIPHERAL [None]
  - PAIN IN EXTREMITY [None]
  - RASH [None]
  - WHITE BLOOD CELL COUNT INCREASED [None]
